FAERS Safety Report 15841740 (Version 1)
Quarter: 2019Q1

REPORT INFORMATION
  Report Type: Spontaneous
  Country: HU (occurrence: HU)
  Receive Date: 20190118
  Receipt Date: 20190118
  Transmission Date: 20190417
  Serious: Yes (Death, Hospitalization, Other)
  Sender: FDA-Public Use
  Company Number: PHHY2017HU005136

PATIENT
  Age: 69 Year
  Sex: Female

DRUGS (10)
  1. CARBOPLATIN. [Suspect]
     Active Substance: CARBOPLATIN
     Indication: METASTASES TO CENTRAL NERVOUS SYSTEM
  2. DOCETAXEL. [Suspect]
     Active Substance: DOCETAXEL
     Indication: METASTASES TO CENTRAL NERVOUS SYSTEM
  3. PACLITAXEL. [Suspect]
     Active Substance: PACLITAXEL
     Indication: BREAST CANCER
     Dosage: 7 CYCLES
     Route: 065
  4. DOCETAXEL. [Suspect]
     Active Substance: DOCETAXEL
     Indication: METASTASES TO LYMPH NODES
     Dosage: 5-6 CYCLES WITH 25% DOSE REDUCTION
     Route: 042
  5. CARBOPLATIN. [Suspect]
     Active Substance: CARBOPLATIN
     Indication: BREAST CANCER
     Dosage: UNK 4 CYCLES
     Route: 065
  6. CARBOPLATIN. [Suspect]
     Active Substance: CARBOPLATIN
     Indication: LYMPHANGIOSIS CARCINOMATOSA
  7. DOCETAXEL. [Suspect]
     Active Substance: DOCETAXEL
     Indication: LYMPHANGIOSIS CARCINOMATOSA
  8. PACLITAXEL. [Suspect]
     Active Substance: PACLITAXEL
     Indication: DISEASE RECURRENCE
  9. DOCETAXEL. [Suspect]
     Active Substance: DOCETAXEL
     Indication: BREAST CANCER
     Dosage: 75 MG/M2, UNK
     Route: 042
  10. CARBOPLATIN. [Suspect]
     Active Substance: CARBOPLATIN
     Indication: METASTASES TO LYMPH NODES
     Dosage: 5-6 CYCLES WITH 25% DOSE REDUCTION
     Route: 065

REACTIONS (12)
  - Metastases to central nervous system [Fatal]
  - Fall [Unknown]
  - Neurotoxicity [Unknown]
  - Breast cancer [Unknown]
  - Asthenia [Unknown]
  - Gait disturbance [Unknown]
  - Autonomic neuropathy [Recovered/Resolved]
  - Orthostatic hypotension [Recovered/Resolved]
  - Neuropathy peripheral [Recovered/Resolved]
  - Drug intolerance [Unknown]
  - Disease progression [Unknown]
  - Disease recurrence [Unknown]
